FAERS Safety Report 24543421 (Version 1)
Quarter: 2024Q4

REPORT INFORMATION
  Report Type: Spontaneous
  Country: US (occurrence: US)
  Receive Date: 20241024
  Receipt Date: 20241024
  Transmission Date: 20250115
  Serious: Yes (Life-Threatening, Hospitalization)
  Sender: ENDO
  Company Number: US-ENDO USA, INC.-2024-050225

PATIENT
  Age: 8 Decade
  Sex: Female

DRUGS (1)
  1. BACLOFEN [Suspect]
     Active Substance: BACLOFEN
     Indication: Product used for unknown indication
     Dosage: UNK UNKNOWN, UNKNOWN
     Route: 048

REACTIONS (7)
  - Stress cardiomyopathy [Recovered/Resolved]
  - Hypokalaemia [Recovered/Resolved]
  - Sinus bradycardia [Recovered/Resolved]
  - Respiratory acidosis [Recovered/Resolved]
  - Respiratory distress [Recovered/Resolved]
  - Blood pressure fluctuation [Recovered/Resolved]
  - Intentional overdose [Recovered/Resolved]
